FAERS Safety Report 7563473-1 (Version None)
Quarter: 2011Q2

REPORT INFORMATION
  Report Type: 
  Country: None (occurrence: None)
  Receive Date: 20110615
  Receipt Date: 20110601
  Transmission Date: 20111010
  Serious: Yes (Other)
  Sender: FDA-Public Use
  Company Number: RB-25654-2011

PATIENT
  Age: 75 Year
  Sex: Female

DRUGS (3)
  1. EVISTA [Concomitant]
  2. LIPITOR [Concomitant]
  3. MUCINEX [Suspect]
     Dosage: 1200 MG TOTAL, PATIENT TOOK ONE TABLET ON 30-MAY-2011 ORAL
     Route: 048

REACTIONS (3)
  - NAUSEA [None]
  - SYNCOPE [None]
  - TREATMENT NONCOMPLIANCE [None]
